FAERS Safety Report 7494021-2 (Version None)
Quarter: 2011Q2

REPORT INFORMATION
  Report Type: 
  Country: None (occurrence: None)
  Receive Date: 20110520
  Receipt Date: 20110517
  Transmission Date: 20111010
  Serious: No
  Sender: FDA-Public Use
  Company Number: US-PFIZER INC-2011107087

PATIENT
  Sex: Female
  Weight: 59.4 kg

DRUGS (5)
  1. GEODON [Suspect]
     Dosage: 160 MG DAILY
  2. CRESTOR [Concomitant]
     Indication: BLOOD CHOLESTEROL ABNORMAL
     Dosage: 10 MG, UNK
  3. TRAZODONE [Concomitant]
     Indication: DEPRESSION
     Dosage: 100 MG, UNK
     Route: 048
  4. GEODON [Suspect]
     Indication: DEPRESSION
     Dosage: UNK
     Route: 048
     Dates: start: 20100101
  5. BUSPAR [Concomitant]
     Indication: DEPRESSION
     Dosage: 15 MG, 2X/DAY

REACTIONS (2)
  - SKIN DISORDER [None]
  - SKIN DISCOLOURATION [None]
